FAERS Safety Report 15393904 (Version 1)
Quarter: 2018Q3

REPORT INFORMATION
  Report Type: Spontaneous
  Country: US (occurrence: US)
  Receive Date: 20180917
  Receipt Date: 20180917
  Transmission Date: 20181010
  Serious: No
  Sender: FDA-Public Use
  Company Number: US-BIOGEN-2018BI00622637

PATIENT
  Sex: Male

DRUGS (1)
  1. AVONEX [Suspect]
     Active Substance: INTERFERON BETA-1A
     Indication: MULTIPLE SCLEROSIS
     Route: 065
     Dates: start: 19900101

REACTIONS (5)
  - Multiple sclerosis relapse [Unknown]
  - Drug dose omission [Unknown]
  - Memory impairment [Unknown]
  - Chills [Unknown]
  - Retching [Unknown]
